FAERS Safety Report 9746798 (Version 2)
Quarter: 2014Q1

REPORT INFORMATION
  Report Type: Spontaneous
  Country: IT (occurrence: IT)
  Receive Date: 20131211
  Receipt Date: 20140331
  Transmission Date: 20141002
  Serious: Yes (Hospitalization)
  Sender: FDA-Public Use
  Company Number: PHHY2013IT143377

PATIENT
  Sex: Female

DRUGS (4)
  1. LORAZEPAM [Suspect]
     Indication: PSYCHOMOTOR HYPERACTIVITY
     Dosage: 2.5 MG, QD
     Route: 048
     Dates: start: 20130311, end: 20130311
  2. LEXOTAN [Suspect]
     Indication: ANXIETY
     Dosage: 2.5 MG, QD
     Route: 048
  3. TRITTICO [Suspect]
     Indication: AGITATION
     Dosage: 75 MG, QD
     Route: 048
  4. ASA [Concomitant]
     Dosage: 100 MG, UNK
     Route: 048

REACTIONS (2)
  - Balance disorder [Recovering/Resolving]
  - Fatigue [Recovering/Resolving]
